FAERS Safety Report 24538962 (Version 1)
Quarter: 2024Q4

REPORT INFORMATION
  Report Type: Spontaneous
  Country: CO (occurrence: CO)
  Receive Date: 20241023
  Receipt Date: 20241023
  Transmission Date: 20250114
  Serious: Yes (Death, Hospitalization, Other)
  Sender: DR REDDYS
  Company Number: CO-RDY-LIT/COL/24/0015640

PATIENT
  Age: 64 Year
  Sex: Male

DRUGS (2)
  1. BEVACIZUMAB [Suspect]
     Active Substance: BEVACIZUMAB
     Indication: Colon cancer metastatic
  2. CAPECITABINE [Suspect]
     Active Substance: CAPECITABINE
     Indication: Colon cancer metastatic

REACTIONS (10)
  - Urinary tract infection [Fatal]
  - Loss of consciousness [Fatal]
  - Hypotension [Fatal]
  - Tachycardia [Fatal]
  - Condition aggravated [Fatal]
  - Malignant neoplasm progression [Fatal]
  - Drug ineffective [Fatal]
  - Pseudomonas infection [Fatal]
  - Enterococcal infection [Fatal]
  - Trichosporon infection [Fatal]
